FAERS Safety Report 14227715 (Version 1)
Quarter: 2017Q4

REPORT INFORMATION
  Report Type: Spontaneous
  Country: FR (occurrence: FR)
  Receive Date: 20171127
  Receipt Date: 20171127
  Transmission Date: 20180321
  Serious: Yes (Death, Other)
  Sender: FDA-Public Use
  Company Number: FR-LANNETT COMPANY, INC.-FR-2017LAN001210

PATIENT
  Sex: Male

DRUGS (1)
  1. BACLOFEN (20MG) [Suspect]
     Active Substance: BACLOFEN
     Indication: MULTIPLE SCLEROSIS
     Dosage: UNK
     Route: 065

REACTIONS (6)
  - Seizure [Unknown]
  - Hypothermia [Unknown]
  - Toxicity to various agents [Fatal]
  - Coma [Unknown]
  - Hypotension [Unknown]
  - Cardiac arrest [Unknown]
